FAERS Safety Report 4842977-6 (Version None)
Quarter: 2005Q4

REPORT INFORMATION
  Report Type: 
  Country: None (occurrence: None)
  Receive Date: 20051130
  Receipt Date: 20051118
  Transmission Date: 20060501
  Serious: Yes (Other)
  Sender: FDA-Public Use
  Company Number: SUS1-2005-00836

PATIENT
  Age: 9 Year
  Sex: Male

DRUGS (3)
  1. ADDERALL XR 30 [Suspect]
     Dosage: SEE IMAGE
     Route: 048
     Dates: start: 20040901, end: 20050201
  2. ADDERALL XR 30 [Suspect]
     Dosage: SEE IMAGE
     Route: 048
     Dates: start: 20051110
  3. BENADRYL [Concomitant]

REACTIONS (6)
  - DYSPNOEA [None]
  - HEADACHE [None]
  - HYPERSENSITIVITY [None]
  - PHARYNGOLARYNGEAL PAIN [None]
  - RASH [None]
  - SWELLING [None]
